FAERS Safety Report 8987387 (Version 2)
Quarter: 2013Q1

REPORT INFORMATION
  Report Type: Spontaneous
  Country: US (occurrence: US)
  Receive Date: 20121226
  Receipt Date: 20130123
  Transmission Date: 20140127
  Serious: No
  Sender: FDA-Public Use
  Company Number: US-PFIZER INC-2012323797

PATIENT
  Age: 65 Year
  Sex: Female
  Weight: 90 kg

DRUGS (22)
  1. BOSULIF [Suspect]
     Dosage: 500 MG, 1X/DAY
     Route: 048
     Dates: start: 20121215
  2. AMMONIUM LACTATE [Concomitant]
     Dosage: UNK
  3. APEXICON E [Concomitant]
     Dosage: UNK
  4. FAMOTIDINE [Concomitant]
     Dosage: UNK
  5. STARLIX [Concomitant]
     Dosage: UNK
  6. RENAL CAPS [Concomitant]
     Dosage: UNK
  7. ZOFRAN [Concomitant]
     Dosage: UNK
  8. IBUPROFEN [Concomitant]
     Dosage: UNK
  9. MIRALAX [Concomitant]
     Dosage: UNK
  10. EFFIENT [Concomitant]
     Dosage: UNK
  11. FOSRENOL [Concomitant]
     Dosage: UNK
  12. TEMAZEPAM [Concomitant]
     Dosage: UNK
  13. ISOSORBIDE [Concomitant]
     Dosage: UNK
  14. NORVASC [Concomitant]
     Dosage: UNK
  15. COREG [Concomitant]
     Dosage: UNK
  16. BENADRYL [Concomitant]
     Dosage: UNK
  17. LIDOCAINE HYDROCHLORIDE/PRILOCAINE HYDROCHLORIDE [Concomitant]
     Dosage: UNK
  18. ASPIRIN [Concomitant]
     Dosage: UNK
  19. TRAMADOL [Concomitant]
     Dosage: UNK
  20. CALCIUM [Concomitant]
     Dosage: UNK
  21. LIPITOR [Concomitant]
     Dosage: UNK
  22. NITROGLYCERINE [Concomitant]
     Dosage: UNK

REACTIONS (2)
  - Diarrhoea [Recovered/Resolved]
  - Nausea [Recovered/Resolved]
